FAERS Safety Report 20674366 (Version 2)
Quarter: 2022Q4

REPORT INFORMATION
  Report Type: Spontaneous
  Country: IN (occurrence: IN)
  Receive Date: 20220405
  Receipt Date: 20221020
  Transmission Date: 20230112
  Serious: Yes (Hospitalization, Other)
  Sender: FDA-Public Use
  Company Number: IN-NOVARTISPH-NVSC2022IN073738

PATIENT
  Age: 79 Year
  Sex: Male
  Weight: 74 kg

DRUGS (10)
  1. CERITINIB [Suspect]
     Active Substance: CERITINIB
     Indication: Non-small cell lung cancer
     Dosage: UNK
     Route: 065
  2. ACETAMINOPHEN [Concomitant]
     Active Substance: ACETAMINOPHEN
     Indication: Pyrexia
     Dosage: 1 DOSAGE FORM (SOS)
     Route: 065
  3. CEFTUM [Concomitant]
     Indication: Prophylaxis
     Dosage: 500 MG, BID (X 5 DAYS)
     Route: 065
  4. LOPERAMIDE [Concomitant]
     Active Substance: LOPERAMIDE
     Indication: Prophylaxis against diarrhoea
     Dosage: 1 DOSAGE FORM, BID
     Route: 065
  5. REDOTIL [Concomitant]
     Indication: Prophylaxis against diarrhoea
     Dosage: 1 DOSAGE FORM, BID
     Route: 065
  6. LOOZ [Concomitant]
     Indication: Constipation prophylaxis
     Dosage: 4 UNK (4 TSF HS)
     Route: 065
  7. PANTO [Concomitant]
     Indication: Product used for unknown indication
     Dosage: 1 DOSAGE FORM, QD
     Route: 065
  8. CREMAFFIN [Concomitant]
     Indication: Product used for unknown indication
     Dosage: UNK (HS (AT NIGHT))
     Route: 065
  9. LEVOFLOXACIN [Concomitant]
     Active Substance: LEVOFLOXACIN
     Indication: Product used for unknown indication
     Dosage: UNK UNK, QD
     Route: 065
  10. AMLODIPINE BESYLATE [Concomitant]
     Active Substance: AMLODIPINE BESYLATE
     Indication: Product used for unknown indication
     Dosage: UNK, QD
     Route: 065

REACTIONS (11)
  - Anaplastic lymphoma kinase gene mutation [Unknown]
  - Asthenia [Unknown]
  - Abdominal pain [Unknown]
  - Back pain [Unknown]
  - Metastases to liver [Unknown]
  - Metastases to lymph nodes [Unknown]
  - Metastases to adrenals [Unknown]
  - Hydroureter [Unknown]
  - Hydronephrosis [Unknown]
  - Non-small cell lung cancer [Unknown]
  - Malignant neoplasm progression [Unknown]
